FAERS Safety Report 15485414 (Version 1)
Quarter: 2018Q4

REPORT INFORMATION
  Report Type: Spontaneous
  Country: US (occurrence: US)
  Receive Date: 20181010
  Receipt Date: 20181010
  Transmission Date: 20190205
  Serious: No
  Sender: FDA-Public Use
  Company Number: US-ROCHE-2019820

PATIENT

DRUGS (2)
  1. TNKASE [Suspect]
     Active Substance: TENECTEPLASE
     Indication: PRODUCT USED FOR UNKNOWN INDICATION
     Route: 065
  2. CATHFLO ACTIVASE [Suspect]
     Active Substance: ALTEPLASE
     Indication: PRODUCT USED FOR UNKNOWN INDICATION
     Route: 065

REACTIONS (2)
  - Intentional product use issue [Unknown]
  - No adverse event [Unknown]
